FAERS Safety Report 7997778-7 (Version None)
Quarter: 2011Q4

REPORT INFORMATION
  Report Type: 
  Country: None (occurrence: None)
  Receive Date: 20111221
  Receipt Date: 20110202
  Transmission Date: 20120403
  Serious: No
  Sender: FDA-Public Use
  Company Number: US-PFIZER INC-K201100139

PATIENT
  Age: 16 Year
  Sex: Female
  Weight: 72.562 kg

DRUGS (1)
  1. EPIPEN [Suspect]
     Indication: ALLERGY TO ARTHROPOD STING
     Dosage: 0.3 MG, SINGLE
     Dates: start: 20110201, end: 20110201

REACTIONS (4)
  - ACCIDENTAL EXPOSURE [None]
  - INJECTION SITE SWELLING [None]
  - INJECTION SITE COLDNESS [None]
  - HEART RATE INCREASED [None]
